FAERS Safety Report 17225074 (Version 1)
Quarter: 2020Q1

REPORT INFORMATION
  Report Type: Spontaneous
  Country: US (occurrence: US)
  Receive Date: 20200102
  Receipt Date: 20200102
  Transmission Date: 20200409
  Serious: Yes (Other)
  Sender: FDA-Public Use
  Company Number: NVSC2019US084209

PATIENT
  Sex: Female

DRUGS (2)
  1. NILOTINIB [Suspect]
     Active Substance: NILOTINIB
     Dosage: 300 MG, QD
     Route: 065
     Dates: start: 20171218, end: 201903
  2. NILOTINIB [Suspect]
     Active Substance: NILOTINIB
     Indication: CHRONIC MYELOID LEUKAEMIA
     Dosage: 300 MG, BID
     Route: 048
     Dates: start: 201203, end: 20171025

REACTIONS (1)
  - Coronary artery disease [Unknown]
